FAERS Safety Report 21113719 (Version 1)
Quarter: 2022Q3

REPORT INFORMATION
  Report Type: Report from Study
  Country: US (occurrence: US)
  Receive Date: 20220721
  Receipt Date: 20220721
  Transmission Date: 20221026
  Serious: Yes (Other)
  Sender: FDA-Public Use
  Company Number: US-ABBVIE-22K-163-4470101-00

PATIENT
  Age: 27 Year
  Sex: Male

DRUGS (4)
  1. HUMIRA [Suspect]
     Active Substance: ADALIMUMAB
     Indication: Crohn^s disease
     Dosage: CITRATE FREE
     Route: 058
     Dates: start: 202006
  2. MODERNA COVID-19 VACCINE [Suspect]
     Active Substance: ELASOMERAN
     Indication: COVID-19 immunisation
     Dosage: FIRST DOSE
     Route: 030
  3. MODERNA COVID-19 VACCINE [Suspect]
     Active Substance: ELASOMERAN
     Dosage: SECOND DOSE
     Route: 030
  4. MODERNA COVID-19 VACCINE [Suspect]
     Active Substance: ELASOMERAN
     Dosage: THIRD/BOOSTER DOSE
     Route: 030

REACTIONS (28)
  - Temperature intolerance [Unknown]
  - Movement disorder [Unknown]
  - Sensory disturbance [Unknown]
  - Sensory loss [Unknown]
  - Gastrointestinal bacterial overgrowth [Unknown]
  - Body height increased [Unknown]
  - Waist circumference increased [Unknown]
  - Bedridden [Unknown]
  - Brain injury [Unknown]
  - Delayed puberty [Unknown]
  - Movement disorder [Unknown]
  - Fatigue [Unknown]
  - Neurological symptom [Unknown]
  - Hair growth rate abnormal [Unknown]
  - Neurological symptom [Unknown]
  - Myocarditis [Unknown]
  - Blood pressure decreased [Unknown]
  - Nail growth abnormal [Unknown]
  - Stress [Unknown]
  - Lyme disease [Unknown]
  - Lyme disease [Unknown]
  - Sensory loss [Unknown]
  - Emotional disorder [Unknown]
  - Rash [Recovered/Resolved]
  - Peripheral swelling [Recovered/Resolved]
  - COVID-19 [Recovered/Resolved]
  - Pain [Unknown]
  - Unevaluable event [Unknown]

NARRATIVE: CASE EVENT DATE: 20201101
